FAERS Safety Report 6998122-4 (Version None)
Quarter: 2010Q3

REPORT INFORMATION
  Report Type: 
  Country: None (occurrence: None)
  Receive Date: 20100920
  Receipt Date: 20070517
  Transmission Date: 20110219
  Serious: Yes (Hospitalization)
  Sender: FDA-Public Use
  Company Number: US-ASTRAZENECA-2006UW11257

PATIENT
  Age: 9014 Day
  Sex: Male
  Weight: 86.2 kg

DRUGS (11)
  1. SEROQUEL [Suspect]
     Indication: BIPOLAR DISORDER
     Route: 048
     Dates: start: 20010101
  2. SEROQUEL [Suspect]
     Dosage: 50-600 MG
     Route: 048
     Dates: start: 20040122, end: 20050430
  3. ZYPREXA [Suspect]
     Dosage: 2.5-7.5 MG
     Dates: start: 19990825
  4. ZYPREXA [Suspect]
     Dates: start: 20010101, end: 20020101
  5. RISPERDAL [Suspect]
     Dates: start: 20030101
  6. RISPERDAL [Suspect]
     Dosage: 0.25-3.5 MG
     Dates: start: 20031201
  7. LITHIUM CARBONATE [Concomitant]
     Dates: start: 20010101, end: 20060101
  8. DEPAKOTE [Concomitant]
     Dates: start: 19990825
  9. LITHOBID [Concomitant]
     Dosage: 300-1200 MG
     Route: 048
     Dates: start: 20031201
  10. HUMULIN 70/30 [Concomitant]
     Dosage: 43-127 UNITS
     Dates: start: 20050425
  11. INSULIN LISPRO [Concomitant]
     Dates: start: 20050425

REACTIONS (4)
  - DIABETES MELLITUS [None]
  - DIABETIC KETOACIDOSIS [None]
  - MANIA [None]
  - TYPE 1 DIABETES MELLITUS [None]
